FAERS Safety Report 9084382 (Version 2)
Quarter: 2013Q1

REPORT INFORMATION
  Report Type: Spontaneous
  Country: US (occurrence: US)
  Receive Date: 20130130
  Receipt Date: 20130311
  Transmission Date: 20140127
  Serious: No
  Sender: FDA-Public Use
  Company Number: US-009507513-1301USA010412

PATIENT
  Age: 27 Year
  Sex: Female

DRUGS (1)
  1. IMPLANON [Suspect]
     Dosage: UNK
     Dates: start: 20110811

REACTIONS (3)
  - Menorrhagia [Not Recovered/Not Resolved]
  - Amenorrhoea [Unknown]
  - Medical device complication [Unknown]
